FAERS Safety Report 6418712-7 (Version None)
Quarter: 2009Q4

REPORT INFORMATION
  Report Type: 
  Country: None (occurrence: None)
  Receive Date: 20091026
  Receipt Date: 20091013
  Transmission Date: 20100525
  Serious: Yes (Other)
  Sender: FDA-Public Use
  Company Number: 2008S1010373

PATIENT
  Age: 52 Year
  Sex: Male
  Weight: 88.905 kg

DRUGS (8)
  1. PHOSPHOSODA FLAVOR NOT SPECIFIED [Suspect]
     Indication: COLONOSCOPY
     Dosage: 90 ML;TOTAL;PO
     Route: 048
     Dates: start: 20030723, end: 20030724
  2. ATENOLOL [Concomitant]
  3. ZOCOR [Concomitant]
  4. ASPIRIN [Concomitant]
  5. ALTACE [Concomitant]
  6. PLAVIX [Concomitant]
  7. B COMPLEX ELX [Concomitant]
  8. ADVAIR DISKUS 100/50 [Concomitant]

REACTIONS (5)
  - ANAEMIA [None]
  - DYSGEUSIA [None]
  - HYPERKALAEMIA [None]
  - RENAL FAILURE CHRONIC [None]
  - RENAL VESSEL DISORDER [None]
